FAERS Safety Report 7232375-2 (Version None)
Quarter: 2011Q1

REPORT INFORMATION
  Report Type: 
  Country: None (occurrence: None)
  Receive Date: 20110107
  Receipt Date: 20101227
  Transmission Date: 20110831
  Serious: Yes (Death)
  Sender: FDA-Public Use
  Company Number: E2B_00000027

PATIENT
  Age: 78 Year
  Sex: Male

DRUGS (12)
  1. RISPERDAL [Suspect]
     Indication: PRODUCT USED FOR UNKNOWN INDICATION
     Dosage: SEE IMAGE
     Route: 048
     Dates: start: 20100512, end: 20100515
  2. RISPERDAL [Suspect]
     Indication: PRODUCT USED FOR UNKNOWN INDICATION
     Dosage: SEE IMAGE
     Route: 048
     Dates: start: 20100516, end: 20100517
  3. RISPERDAL [Suspect]
     Indication: PRODUCT USED FOR UNKNOWN INDICATION
     Dosage: SEE IMAGE
     Route: 048
     Dates: start: 20100518, end: 20100530
  4. BISOPROLOL [Concomitant]
  5. TORESEMIDE (TOREM) [Concomitant]
  6. SERTRALINE HYDROCHLORIDE [Suspect]
     Indication: PRODUCT USED FOR UNKNOWN INDICATION
     Dosage: 50 MG (50 MG,1 D),ORAL ; 75 MG (75 MG,1 D),ORAL ; 100 MG (100 MG,1 D),ORAL
     Route: 048
     Dates: start: 20100519, end: 20100526
  7. SERTRALINE HYDROCHLORIDE [Suspect]
     Indication: PRODUCT USED FOR UNKNOWN INDICATION
     Dosage: 50 MG (50 MG,1 D),ORAL ; 75 MG (75 MG,1 D),ORAL ; 100 MG (100 MG,1 D),ORAL
     Route: 048
     Dates: start: 20100527, end: 20100530
  8. SERTRALINE HYDROCHLORIDE [Suspect]
     Indication: PRODUCT USED FOR UNKNOWN INDICATION
     Dosage: 50 MG (50 MG,1 D),ORAL ; 75 MG (75 MG,1 D),ORAL ; 100 MG (100 MG,1 D),ORAL
     Route: 048
     Dates: end: 20100518
  9. ACETYLSALICYLIC ACID SRT [Concomitant]
  10. INSULIN [Concomitant]
  11. CALCIUM ACETATE, POTASSIUM ACETATE, SODIUM ACETATE, MAGNESIUM ACETATE, [Concomitant]
  12. SIMVASTATIN [Concomitant]

REACTIONS (1)
  - ACUTE MYOCARDIAL INFARCTION [None]
